FAERS Safety Report 23408262 (Version 1)
Quarter: 2024Q1

REPORT INFORMATION
  Report Type: Other
  Country: US (occurrence: None)
  Receive Date: 20240117
  Receipt Date: 20240117
  Transmission Date: 20240410
  Serious: Yes (Other)
  Sender: FDA-Public Use
  Company Number: US-ROCHE-3489139

PATIENT
  Age: 12 Year
  Sex: Female
  Weight: 24 kg

DRUGS (17)
  1. EVRYSDI [Suspect]
     Active Substance: RISDIPLAM
     Indication: Spinal muscular atrophy
     Route: 048
     Dates: start: 20210107
  2. HYCET (UNITED STATES) [Concomitant]
  3. PULMICORT TURBUHALER [Concomitant]
     Active Substance: BUDESONIDE
  4. IBUPROFEN [Concomitant]
     Active Substance: IBUPROFEN
  5. DICLOFENAC SODIUM [Concomitant]
     Active Substance: DICLOFENAC\DICLOFENAC SODIUM
     Dosage: 2-3 GM (2-3 TIME A DAY AS NEEDED)
  6. FLONASE [Concomitant]
     Active Substance: FLUTICASONE PROPIONATE
     Dosage: 2 TIMES DAILY AS NEEDED
  7. CUVPOSA [GLYCOPYRRONIUM] [Concomitant]
  8. ATROVENT [Concomitant]
     Active Substance: IPRATROPIUM BROMIDE
  9. ISOPTO TEARS [Concomitant]
     Active Substance: HYPROMELLOSE 2910 (4000 MPA.S)
     Dosage: 1 DROP INTO BOTH EYES
  10. XOPENEX [Concomitant]
     Active Substance: LEVALBUTEROL HYDROCHLORIDE
  11. CLARITIN [Concomitant]
     Active Substance: LORATADINE
  12. MELATONIN [Concomitant]
     Active Substance: MELATONIN
  13. BACTROBAN [Concomitant]
     Active Substance: MUPIROCIN CALCIUM
     Route: 061
  14. MYCOSTATIN [Concomitant]
     Active Substance: NYSTATIN
  15. MIRALAX [Concomitant]
     Active Substance: POLYETHYLENE GLYCOL 3350
  16. SODIUM CHLORIDE [Concomitant]
     Active Substance: SODIUM CHLORIDE
  17. KENALOG [Concomitant]
     Active Substance: TRIAMCINOLONE ACETONIDE
     Route: 061

REACTIONS (3)
  - Hepatic enzyme increased [Not Recovered/Not Resolved]
  - Blood glucose increased [Unknown]
  - Blood potassium increased [Unknown]

NARRATIVE: CASE EVENT DATE: 20220517
